FAERS Safety Report 9935183 (Version 1)
Quarter: 2014Q1

REPORT INFORMATION
  Report Type: Spontaneous
  Country: US (occurrence: US)
  Receive Date: 20140228
  Receipt Date: 20140228
  Transmission Date: 20141002
  Serious: Yes (Other)
  Sender: FDA-Public Use
  Company Number: US-ASTRAZENECA-2014SE12788

PATIENT
  Age: 52 Year
  Sex: Female
  Weight: 71.2 kg

DRUGS (6)
  1. FASLODEX [Suspect]
     Indication: BREAST CANCER FEMALE
     Route: 030
  2. ZOMETA [Concomitant]
     Indication: BREAST CANCER FEMALE
     Dosage: UNKNOWN UNK
  3. OTHER (UNSPECIFIED) [Concomitant]
     Indication: NEOPLASM MALIGNANT
     Dosage: UNKNOWN UNK
  4. OTHER (UNSPECIFIED) [Concomitant]
     Indication: PAIN
     Dosage: UNKNOWN UNK
  5. OTHER (UNSPECIFIED) [Concomitant]
     Indication: SLEEP DISORDER
     Dosage: UNKNOWN UNK
  6. OTHER (UNSPECIFIED) [Concomitant]
     Indication: NAUSEA
     Dosage: UNKNOWN UNK

REACTIONS (4)
  - Pleural effusion [Unknown]
  - Metastases to lung [Unknown]
  - Pneumonia [Recovered/Resolved]
  - Cough [Unknown]
